FAERS Safety Report 8835148 (Version 3)
Quarter: 2013Q2

REPORT INFORMATION
  Report Type: Report from Study
  Country: DE (occurrence: DE)
  Receive Date: 20121011
  Receipt Date: 20130614
  Transmission Date: 20140414
  Serious: Yes (Death)
  Sender: FDA-Public Use
  Company Number: DE-ROCHE-1144370

PATIENT
  Age: 59 Year
  Sex: Male
  Weight: 90 kg

DRUGS (3)
  1. CAPECITABINE [Suspect]
     Indication: GASTRIC CANCER
     Route: 048
     Dates: start: 20090507, end: 20091008
  2. TAXOTERE [Concomitant]
     Indication: GASTRIC CANCER
     Route: 042
     Dates: start: 20090507, end: 20091008
  3. CISPLATIN [Concomitant]
     Indication: GASTRIC CANCER
     Route: 042
     Dates: start: 20090507, end: 20091008

REACTIONS (1)
  - Malignant neoplasm progression [Fatal]
